FAERS Safety Report 8555512-6 (Version None)
Quarter: 2012Q3

REPORT INFORMATION
  Report Type: 
  Country: None (occurrence: None)
  Receive Date: 20120731
  Receipt Date: 20111014
  Transmission Date: 20120928
  Serious: No
  Sender: FDA-Public Use
  Company Number: US-ASTRAZENECA-2011SE07403

PATIENT
  Age: 42 Year
  Sex: Female
  Weight: 124.7 kg

DRUGS (19)
  1. SEROQUEL [Suspect]
     Indication: POST-TRAUMATIC STRESS DISORDER
     Route: 048
     Dates: start: 20100610
  2. CARAFATE [Concomitant]
     Indication: ULCER
  3. AMBIEN [Concomitant]
  4. SEROQUEL [Suspect]
     Indication: SLEEP DISORDER
     Route: 048
     Dates: start: 20100610
  5. METFORMIN HYDROCHLORIDE [Concomitant]
  6. SAVALLA [Concomitant]
  7. SEROQUEL [Suspect]
     Indication: BIPOLAR I DISORDER
     Route: 048
     Dates: start: 20100610
  8. SEROQUEL [Suspect]
     Route: 048
  9. SEROQUEL [Suspect]
     Route: 048
  10. RELPAX [Concomitant]
     Indication: MIGRAINE
  11. NOVOLOG [Concomitant]
     Dosage: 70/30
  12. LEVEMIR [Concomitant]
  13. DURAGESIC-100 [Concomitant]
  14. SEROQUEL [Suspect]
     Route: 048
  15. FELDENE [Concomitant]
  16. XANAX [Concomitant]
  17. TOPAMAX [Concomitant]
  18. LEVOTHYROXINE SODIUM [Concomitant]
  19. PERCOCET [Concomitant]

REACTIONS (7)
  - APHAGIA [None]
  - HYPERSOMNIA [None]
  - SOMNOLENCE [None]
  - IRRITABILITY [None]
  - SINUSITIS [None]
  - DRUG DOSE OMISSION [None]
  - OFF LABEL USE [None]
